FAERS Safety Report 23770935 (Version 1)
Quarter: 2024Q2

REPORT INFORMATION
  Report Type: Spontaneous
  Country: IT (occurrence: IT)
  Receive Date: 20240423
  Receipt Date: 20240423
  Transmission Date: 20240716
  Serious: Yes (Death, Other)
  Sender: FDA-Public Use
  Company Number: IT-TEYRO-2024-TY-000134

PATIENT
  Age: 57 Year
  Sex: Male

DRUGS (6)
  1. GEMCITABINE [Suspect]
     Active Substance: GEMCITABINE
     Indication: Bladder cancer
     Dosage: PALLIATIVE INTENT 6 CYCLE, UNK
     Route: 065
  2. GEMCITABINE [Suspect]
     Active Substance: GEMCITABINE
     Indication: Bladder cancer
  3. GEMCITABINE [Suspect]
     Active Substance: GEMCITABINE
     Indication: Signet-ring cell carcinoma
  4. TAXOL [Suspect]
     Active Substance: PACLITAXEL
     Indication: Bladder cancer
     Dosage: PALLIATIVE INTENT 6 CYCLE, UNK
     Route: 065
  5. TAXOL [Suspect]
     Active Substance: PACLITAXEL
     Indication: Bladder cancer
  6. TAXOL [Suspect]
     Active Substance: PACLITAXEL
     Indication: Signet-ring cell carcinoma

REACTIONS (3)
  - Neoplasm progression [Fatal]
  - Therapy non-responder [Fatal]
  - Off label use [Unknown]
